FAERS Safety Report 24968821 (Version 1)
Quarter: 2025Q1

REPORT INFORMATION
  Report Type: Report from Study
  Country: US (occurrence: US)
  Receive Date: 20250214
  Receipt Date: 20250214
  Transmission Date: 20250408
  Serious: No
  Sender: AMNEAL
  Company Number: US-AMNEAL PHARMACEUTICALS-2024-AMRX-02700

PATIENT
  Sex: Male
  Weight: 60.317 kg

DRUGS (6)
  1. CARBIDOPA\LEVODOPA [Suspect]
     Active Substance: CARBIDOPA\LEVODOPA
     Indication: Parkinson^s disease
     Dosage: 23.75-95 MG; 2 CAPSULES, 4X/DAY
     Route: 048
  2. CARBIDOPA\LEVODOPA [Suspect]
     Active Substance: CARBIDOPA\LEVODOPA
     Route: 065
  3. CARBIDOPA\LEVODOPA [Suspect]
     Active Substance: CARBIDOPA\LEVODOPA
     Route: 048
  4. CARBIDOPA\LEVODOPA [Suspect]
     Active Substance: CARBIDOPA\LEVODOPA
     Route: 048
  5. ZOLOFT [Concomitant]
     Active Substance: SERTRALINE HYDROCHLORIDE
     Indication: Product used for unknown indication
     Route: 065
  6. ZOLOFT [Concomitant]
     Active Substance: SERTRALINE HYDROCHLORIDE
     Route: 048

REACTIONS (12)
  - Tremor [Unknown]
  - Dysphonia [Unknown]
  - Restlessness [Unknown]
  - Reduced facial expression [Unknown]
  - Back pain [Unknown]
  - Bradykinesia [Unknown]
  - Therapeutic response shortened [Unknown]
  - Dyskinesia [Unknown]
  - Muscle rigidity [Unknown]
  - Orthostatic hypotension [Unknown]
  - Constipation [Unknown]
  - Treatment noncompliance [Unknown]
